FAERS Safety Report 9060107 (Version 1)
Quarter: 2013Q1

REPORT INFORMATION
  Report Type: Spontaneous
  Country: US (occurrence: None)
  Receive Date: 20130207
  Receipt Date: 20130207
  Transmission Date: 20140127
  Serious: Yes (Other)
  Sender: FDA-Public Use
  Company Number: None

PATIENT
  Age: 70 Year
  Sex: Male

DRUGS (2)
  1. STIVARGA 40 MG BAYER [Suspect]
     Dosage: 160MG QD PO
     Route: 048
  2. GABAPENTIN [Concomitant]

REACTIONS (3)
  - Erythema [None]
  - Pain in extremity [None]
  - Dysphonia [None]
